FAERS Safety Report 5795357-3 (Version None)
Quarter: 2008Q2

REPORT INFORMATION
  Report Type: 
  Country: None (occurrence: None)
  Receive Date: 20080630
  Receipt Date: 20080618
  Transmission Date: 20081010
  Serious: Yes (Other)
  Sender: FDA-Public Use
  Company Number: US-JNJFOC-20080606210

PATIENT
  Age: 82 Year
  Sex: Male

DRUGS (7)
  1. ITRACONAZOLE [Suspect]
     Indication: PROPHYLAXIS
     Route: 065
  2. AMPICILLIN [Suspect]
     Indication: PROPHYLAXIS
     Route: 065
  3. CEFTAZADIME [Suspect]
     Indication: PROPHYLAXIS
     Route: 065
  4. ACYCLOVIR SODIUM [Suspect]
     Indication: PROPHYLAXIS
     Route: 065
  5. PREDNISOLONE [Concomitant]
     Indication: CHRONIC RESPIRATORY DISEASE
  6. CEFTRIAXONE [Concomitant]
     Indication: PNEUMONIA
     Route: 042
  7. LINEZOLID [Concomitant]
     Indication: ENTEROCOCCAL INFECTION

REACTIONS (1)
  - ENTEROCOLITIS BACTERIAL [None]
